FAERS Safety Report 18234433 (Version 1)
Quarter: 2020Q3

REPORT INFORMATION
  Report Type: Spontaneous
  Country: CN (occurrence: CN)
  Receive Date: 20200904
  Receipt Date: 20200904
  Transmission Date: 20201103
  Serious: Yes (Hospitalization, Other)
  Sender: FDA-Public Use
  Company Number: CN-ASTRAZENECA-2020SF13175

PATIENT
  Sex: Female

DRUGS (1)
  1. OLAPARIB. [Suspect]
     Active Substance: OLAPARIB
     Dosage: UNKNOWN
     Route: 048

REACTIONS (4)
  - Blister [Unknown]
  - Hepatic failure [Unknown]
  - Anaemia [Unknown]
  - Renal failure [Unknown]
